FAERS Safety Report 17067051 (Version 1)
Quarter: 2019Q4

REPORT INFORMATION
  Report Type: Spontaneous
  Country: MX (occurrence: MX)
  Receive Date: 20191116
  Receipt Date: 20191116
  Transmission Date: 20200122
  Serious: Yes (Other)
  Sender: FDA-Public Use
  Company Number: None

PATIENT
  Sex: Female

DRUGS (1)
  1. TETRACYCLINE [Suspect]
     Active Substance: TETRACYCLINE

REACTIONS (6)
  - Memory impairment [None]
  - Feeling abnormal [None]
  - Fear [None]
  - Anxiety [None]
  - Presyncope [None]
  - Toxicity to various agents [None]

NARRATIVE: CASE EVENT DATE: 20191115
